FAERS Safety Report 9314529 (Version 2)
Quarter: 2013Q3

REPORT INFORMATION
  Report Type: Spontaneous
  Country: DE (occurrence: None)
  Receive Date: 20130524
  Receipt Date: 20130716
  Transmission Date: 20140515
  Serious: Yes (Hospitalization)
  Sender: FDA-Public Use
  Company Number: 1305-654

PATIENT
  Age: 83 Year
  Sex: Female

DRUGS (9)
  1. EYLEA (AFLIBERCEPT) (INJECTION) (AFLIBERCEPT) [Suspect]
     Indication: AGE-RELATED MACULAR DEGENERATION
  2. PREDNISONE (PREDNISONE) [Concomitant]
  3. KARVEZIDE (KARVEA HCT) [Concomitant]
  4. TENORMIN (ATENOLOL) [Concomitant]
  5. CARDIPRIN (ACETYLSALICYLIC ACID) [Concomitant]
  6. LOSEC (OMEPRAZOLE) [Concomitant]
  7. OROXIN (SULFAMETHOXYPYRIDAZINE) [Concomitant]
  8. FOSAMAX (ALENDRONATE SODIUM) [Concomitant]
  9. OVESTIN (ESTRIOL) [Concomitant]

REACTIONS (2)
  - Oedema peripheral [None]
  - Drug effect decreased [None]
